FAERS Safety Report 12711472 (Version 1)
Quarter: 2016Q3

REPORT INFORMATION
  Report Type: Spontaneous
  Country: US (occurrence: US)
  Receive Date: 20160902
  Receipt Date: 20160902
  Transmission Date: 20161109
  Serious: No
  Sender: FDA-Public Use
  Company Number: US-PFIZER INC-2016406614

PATIENT
  Age: 52 Year
  Sex: Female

DRUGS (19)
  1. VOLTAREN [Concomitant]
     Active Substance: DICLOFENAC SODIUM
     Dosage: 2 G, UNK(5 TIMES PER DAY)
     Route: 061
     Dates: start: 20141009
  2. FOLIC ACID. [Concomitant]
     Active Substance: FOLIC ACID
     Dosage: 1 MG, 1X/DAY (ONCE DAILY)
     Route: 048
  3. MAGNESIUM OXIDE. [Concomitant]
     Active Substance: MAGNESIUM OXIDE
     Dosage: 400 MG, 1X/DAY (ONCE DAILY)
     Route: 048
  4. NOVOLOG [Concomitant]
     Active Substance: INSULIN ASPART
     Dosage: 8 IU, 3X/DAY (100 UNIT/ML, BEFORE MEALS)
     Route: 058
  5. ULTRAM [Concomitant]
     Active Substance: TRAMADOL HYDROCHLORIDE
     Dosage: 50 MG, 2X/DAY
     Route: 048
     Dates: start: 20150427
  6. ALIGN [Concomitant]
     Active Substance: BIFIDOBACTERIUM LONGUM SUBSP. INFANTIS
     Dosage: 4 MG, DAILY
     Route: 048
  7. CELEBREX [Concomitant]
     Active Substance: CELECOXIB
     Dosage: 200 MG, 2X/DAY
     Route: 048
     Dates: start: 20160418
  8. PRILOSEC [Concomitant]
     Active Substance: OMEPRAZOLE MAGNESIUM
     Dosage: 20 MG, 1X/DAY(BEFORE A MEAL)
     Route: 048
  9. VITAMIN B12 [Concomitant]
     Active Substance: CYANOCOBALAMIN
     Dosage: 50 UG, MONTHLY (1,000 MCG/ML. /INJECT 0.05 MILLILITER (50 MCG))
     Route: 030
  10. CYMBALTA [Concomitant]
     Active Substance: DULOXETINE HYDROCHLORIDE
     Dosage: 30 MG, DAILY
     Route: 048
     Dates: start: 20160413
  11. HYDROCODONE-ACETAMINOPHEN [Concomitant]
     Active Substance: ACETAMINOPHEN\HYDROCODONE
     Indication: PAIN
     Dosage: 1 DF, AS NEEDED [HYDROCODONE 10 MG] / [ACETAMINOPHEN 325 MG] (EVERY 6 HOURS AS NEEDED)
     Route: 048
     Dates: start: 20160515
  12. RELPAX [Suspect]
     Active Substance: ELETRIPTAN HYDROBROMIDE
     Indication: HEADACHE
     Dosage: 40 MG, 1X/DAY (MAY REPEAT DOSE AFTER 2 HR. NO MORE THAN 2 DOSES WITHIN A 24-HR PERIOD)
     Route: 048
     Dates: start: 20160418
  13. LEVEMIR [Concomitant]
     Active Substance: INSULIN DETEMIR
     Dosage: 20 IU, 1X/DAY (100 UNIT/ML (3 ML), QHS)
     Route: 058
  14. PROMETHAZINE [Concomitant]
     Active Substance: PROMETHAZINE\PROMETHAZINE HYDROCHLORIDE
     Dosage: 25 MG, AS NEEDED (EVERY 4-6 HOURS )
     Route: 048
     Dates: start: 20160115
  15. ZANTAC [Concomitant]
     Active Substance: RANITIDINE HYDROCHLORIDE
     Dosage: 150 MG, UNK
     Route: 048
  16. LOPID [Suspect]
     Active Substance: GEMFIBROZIL
     Dosage: 600 MG, 2X/DAY (30 MINUTES BEFORE MORNING AND EVENING MEAL)
     Route: 048
  17. CREON [Concomitant]
     Active Substance: PANCRELIPASE AMYLASE\PANCRELIPASE LIPASE\PANCRELIPASE PROTEASE
     Dosage: 2 DF, 3X/DAY (6,000-19,000-30,000 UNIT)
     Route: 048
  18. LYRICA [Suspect]
     Active Substance: PREGABALIN
     Dosage: 225 MG, 2X/DAY
     Route: 048
     Dates: start: 20160406
  19. ZANAFLEX [Concomitant]
     Active Substance: TIZANIDINE HYDROCHLORIDE
     Dosage: 4 MG, AS NEEDED (EVERY 8 HOURS AS NEEDED TO NOT TO EXCEED 3 DOSES IN 24 HOURS.)
     Route: 048

REACTIONS (17)
  - Depression [Unknown]
  - Neuropathy peripheral [Unknown]
  - Anal incontinence [Unknown]
  - Back pain [Unknown]
  - Palpitations [Unknown]
  - Romberg test positive [Unknown]
  - Pain in extremity [Unknown]
  - Diarrhoea [Unknown]
  - Tenderness [Unknown]
  - Gait disturbance [Unknown]
  - Arthralgia [Unknown]
  - Condition aggravated [Unknown]
  - Headache [Unknown]
  - Pain [Unknown]
  - Insomnia [Unknown]
  - Seasonal allergy [Unknown]
  - Neck pain [Unknown]
